FAERS Safety Report 9828198 (Version 1)
Quarter: 2014Q1

REPORT INFORMATION
  Report Type: Spontaneous
  Country: US (occurrence: US)
  Receive Date: 20140117
  Receipt Date: 20140117
  Transmission Date: 20141002
  Serious: No
  Sender: FDA-Public Use
  Company Number: US-GILEAD-2011-0038356

PATIENT
  Age: 36 Year
  Sex: Male
  Weight: 72.57 kg

DRUGS (1)
  1. ATRIPLA [Suspect]
     Indication: HIV INFECTION
     Dates: start: 201102

REACTIONS (5)
  - Weight increased [Unknown]
  - Incorrect dose administered [Unknown]
  - Abnormal dreams [Recovering/Resolving]
  - Insomnia [Unknown]
  - Feeling jittery [Unknown]
